FAERS Safety Report 7073086-6 (Version None)
Quarter: 2010Q4

REPORT INFORMATION
  Report Type: 
  Country: None (occurrence: None)
  Receive Date: 20101029
  Receipt Date: 20100421
  Transmission Date: 20110411
  Serious: No
  Sender: FDA-Public Use
  Company Number: A0856118A

PATIENT
  Age: 60 Year
  Sex: Male

DRUGS (9)
  1. ADVAIR DISKUS 100/50 [Suspect]
     Indication: ASTHMA
     Dosage: 1PUFF TWICE PER DAY
     Route: 055
     Dates: start: 20100101
  2. VENTOLIN [Suspect]
     Indication: CHRONIC OBSTRUCTIVE PULMONARY DISEASE
     Dosage: 1PUFF AS REQUIRED
     Route: 055
  3. SPIRIVA [Concomitant]
  4. ADVAIR DISKUS 100/50 [Concomitant]
  5. PLAVIX [Concomitant]
  6. CARBIDOPA [Concomitant]
  7. UNSPECIFIED MEDICATION [Concomitant]
  8. ASPIRIN [Concomitant]
  9. VITAMIN B-12 [Concomitant]

REACTIONS (4)
  - DYSGEUSIA [None]
  - GLOSSITIS [None]
  - INSOMNIA [None]
  - SWOLLEN TONGUE [None]
